FAERS Safety Report 20892047 (Version 3)
Quarter: 2022Q3

REPORT INFORMATION
  Report Type: Spontaneous
  Country: JP (occurrence: JP)
  Receive Date: 20220530
  Receipt Date: 20220705
  Transmission Date: 20221027
  Serious: Yes (Death, Life-Threatening, Other)
  Sender: FDA-Public Use
  Company Number: JP-MSD-M2022-20936

PATIENT
  Sex: Female
  Weight: 32 kg

DRUGS (2)
  1. LAGEVRIO [Suspect]
     Active Substance: MOLNUPIRAVIR
     Indication: COVID-19 treatment
     Dosage: 800 MILLIGRAM, BID
     Route: 048
     Dates: start: 20220305, end: 20220310
  2. CLARITHROMYCIN [Suspect]
     Active Substance: CLARITHROMYCIN
     Indication: Infection prophylaxis
     Dosage: 200 MILLIGRAM, BID
     Route: 048
     Dates: start: 20220305, end: 20220310

REACTIONS (6)
  - Decreased appetite [Fatal]
  - Food refusal [Fatal]
  - Renal impairment [Fatal]
  - Respiratory failure [Fatal]
  - General physical health deterioration [Unknown]
  - Nausea [Unknown]

NARRATIVE: CASE EVENT DATE: 20220101
